FAERS Safety Report 4273758-2 (Version None)
Quarter: 2004Q1

REPORT INFORMATION
  Report Type: 
  Country: None (occurrence: None)
  Receive Date: 20040115
  Receipt Date: 20040105
  Transmission Date: 20041129
  Serious: Yes (Hospitalization)
  Sender: FDA-Public Use
  Company Number: 200432

PATIENT
  Age: 70 Year
  Sex: Male

DRUGS (13)
  1. RITUXAN [Suspect]
     Indication: CHRONIC LYMPHOCYTIC LEUKAEMIA
     Dosage: 375 MG/M2, INTRAVENOUS
     Route: 042
     Dates: start: 20030101, end: 20030301
  2. SOLU-MEDROL [Suspect]
     Indication: CHRONIC LYMPHOCYTIC LEUKAEMIA
     Dosage: 1 G/M2, INTRAVENOUS
     Route: 042
     Dates: start: 20030101, end: 20030301
  3. ALLOPURINOL [Concomitant]
  4. ENALAPRIL MALEATE [Concomitant]
  5. LASIX [Concomitant]
  6. IMDUR [Concomitant]
  7. TOPROL-XL [Concomitant]
  8. ALDACTONE [Concomitant]
  9. BACTRIM DS [Concomitant]
  10. VALTREX [Concomitant]
  11. PEPCID [Concomitant]
  12. DIFLUCAN [Concomitant]
  13. COMBIVENT (ALBUTEROL, ALBUTEROL SULFATE, IPRATROPIUM BROMIDE) [Concomitant]

REACTIONS (5)
  - ANGINA PECTORIS [None]
  - ATRIAL FIBRILLATION [None]
  - CORONARY ARTERY OCCLUSION [None]
  - EJECTION FRACTION DECREASED [None]
  - REFUSAL OF TREATMENT BY PATIENT [None]
